FAERS Safety Report 23512923 (Version 1)
Quarter: 2024Q1

REPORT INFORMATION
  Report Type: Spontaneous
  Country: US (occurrence: None)
  Receive Date: 20240209
  Receipt Date: 20240209
  Transmission Date: 20240410
  Serious: Yes (Disabling)
  Sender: FDA-Public Use
  Company Number: None

PATIENT
  Age: 67 Year
  Sex: Male
  Weight: 94.5 kg

DRUGS (2)
  1. PRAMIPEXOLE [Suspect]
     Active Substance: PRAMIPEXOLE\PRAMIPEXOLE DIHYDROCHLORIDE
     Indication: Restless legs syndrome
     Dosage: 3 TABLETS 3 TIMES A DAY ORAL?
     Route: 048
     Dates: start: 20210714, end: 20240208
  2. GABAPENTIN [Suspect]
     Active Substance: GABAPENTIN

REACTIONS (16)
  - Restless legs syndrome [None]
  - Condition aggravated [None]
  - Paradoxical drug reaction [None]
  - Arthralgia [None]
  - Musculoskeletal discomfort [None]
  - Product prescribing issue [None]
  - Dizziness [None]
  - Pollakiuria [None]
  - Nerve injury [None]
  - Muscular weakness [None]
  - Limb discomfort [None]
  - Hypotonia [None]
  - Constipation [None]
  - Neuropathy peripheral [None]
  - Gastrointestinal disorder [None]
  - Renal disorder [None]

NARRATIVE: CASE EVENT DATE: 20230711
